FAERS Safety Report 8605160-4 (Version None)
Quarter: 2012Q3

REPORT INFORMATION
  Report Type: 
  Country: None (occurrence: None)
  Receive Date: 20120807
  Receipt Date: 20120723
  Transmission Date: 20120928
  Serious: Yes (Other)
  Sender: FDA-Public Use
  Company Number: 2012P1044580

PATIENT
  Age: 57 Year
  Sex: Male
  Weight: 72.5755 kg

DRUGS (6)
  1. LISINOPRIL [Concomitant]
  2. PLAVIX [Concomitant]
  3. ZOCOR [Concomitant]
  4. EXTRA STRENGTH TYLENOL [Concomitant]
  5. FENTANYL-100 [Suspect]
     Indication: PAIN
     Dosage: 1 PATCH; Q2D; TDER
     Route: 062
     Dates: start: 20110101, end: 20120101
  6. METOPROLOL TARTRATE [Concomitant]

REACTIONS (7)
  - FALL [None]
  - APPLICATION SITE ERYTHEMA [None]
  - FEMUR FRACTURE [None]
  - HYPERHIDROSIS [None]
  - PRODUCT ADHESION ISSUE [None]
  - DRUG EFFECT DECREASED [None]
  - WEIGHT DECREASED [None]
